FAERS Safety Report 6938431-8 (Version None)
Quarter: 2010Q3

REPORT INFORMATION
  Report Type: 
  Country: None (occurrence: None)
  Receive Date: 20100824
  Receipt Date: 20100817
  Transmission Date: 20110219
  Serious: Yes (Death, Hospitalization)
  Sender: FDA-Public Use
  Company Number: GB-JNJFOC-20100702581

PATIENT
  Sex: Female
  Weight: 67.5 kg

DRUGS (6)
  1. TRABECTEDIN [Suspect]
     Indication: OVARIAN CANCER
     Route: 042
  2. DOXIL [Suspect]
     Indication: OVARIAN CANCER
     Route: 042
  3. CITALOPRAM HYDROBROMIDE [Concomitant]
     Indication: DEPRESSION
     Route: 048
  4. CHLORHEXIDINE GLUCONATE [Concomitant]
     Route: 048
  5. NORMAL SALINE [Concomitant]
     Route: 042
  6. BLOOD TRANSFUSION [Concomitant]
     Route: 042

REACTIONS (12)
  - ALANINE AMINOTRANSFERASE ABNORMAL [None]
  - BLOOD ALKALINE PHOSPHATASE ABNORMAL [None]
  - BLOOD BILIRUBIN ABNORMAL [None]
  - DEHYDRATION [None]
  - DRUG TOXICITY [None]
  - HYPERGLYCAEMIA [None]
  - HYPOALBUMINAEMIA [None]
  - HYPOTENSION [None]
  - NEUTROPENIC SEPSIS [None]
  - ORAL PAIN [None]
  - RENAL FAILURE ACUTE [None]
  - THROMBOCYTOPENIA [None]
